FAERS Safety Report 11336596 (Version 3)
Quarter: 2016Q1

REPORT INFORMATION
  Report Type: Spontaneous
  Country: FR (occurrence: FR)
  Receive Date: 20150804
  Receipt Date: 20160309
  Transmission Date: 20160525
  Serious: Yes (Death, Hospitalization, Other)
  Sender: FDA-Public Use
  Company Number: FR-PFIZER INC-FR-WYE-G02976209

PATIENT
  Age: 62 Year
  Sex: Female
  Weight: 74 kg

DRUGS (46)
  1. BISOPROLOL [Concomitant]
     Active Substance: BISOPROLOL
     Dosage: 10 MG, 1X/DAY
     Route: 048
     Dates: end: 20081204
  2. ANAFRANIL [Concomitant]
     Active Substance: CLOMIPRAMINE HYDROCHLORIDE
     Dosage: 75 MG, UNK (UNSPECIFIED POSOLOGY)
     Route: 048
     Dates: end: 20081204
  3. DOBUTREX [Concomitant]
     Active Substance: DOBUTAMINE HYDROCHLORIDE
     Indication: ARRHYTHMIA
     Dosage: 250 MG, DAILY
     Route: 042
     Dates: start: 20081124, end: 20081128
  4. TEMESTA [Concomitant]
     Active Substance: LORAZEPAM
     Dosage: 2.5 MG, 2X/DAY
     Route: 048
     Dates: start: 20081113, end: 20081204
  5. CICLOSPORIN [Suspect]
     Active Substance: CYCLOSPORINE
     Dosage: 17 MG, UNK
     Dates: start: 20081124, end: 20081124
  6. SMECTA [Concomitant]
     Active Substance: MONTMORILLONITE
     Indication: DIARRHOEA
     Dosage: 2 DF, DAILY
     Route: 048
     Dates: start: 20081123, end: 20081204
  7. IMODIUM [Concomitant]
     Active Substance: LOPERAMIDE HYDROCHLORIDE
     Dosage: 2 MG, 2X/DAY
     Route: 048
     Dates: start: 20081123, end: 20081204
  8. FLAGYL [Concomitant]
     Active Substance: METRONIDAZOLE\METRONIDAZOLE HYDROCHLORIDE
     Dosage: 500 MG/100 ML TWICE DAILY
     Dates: start: 20081125, end: 20081204
  9. OMEPRAZOLE. [Concomitant]
     Active Substance: OMEPRAZOLE
     Dosage: 20 MG, 1X/DAY
     Route: 048
     Dates: end: 20081204
  10. VANCOMYCIN [Concomitant]
     Active Substance: VANCOMYCIN
     Dosage: 250 MG, 4X/DAY
     Dates: start: 20081115, end: 20081204
  11. METHOTREXATE (METHOTREXATE SODIUM) [Suspect]
     Active Substance: METHOTREXATE SODIUM
     Dosage: 17 MG, UNK
     Route: 065
     Dates: start: 20081124, end: 20081124
  12. THYMOGLOBULINE [Suspect]
     Active Substance: LAPINE T-LYMPHOCYTE IMMUNE GLOBULIN
     Dosage: 185 MG, 1X/DAY
     Dates: start: 20081119, end: 20081120
  13. MOPRAL [Concomitant]
     Active Substance: OMEPRAZOLE SODIUM
     Dosage: 40 MG, 1X/DAY
     Route: 042
     Dates: start: 20081120, end: 20081204
  14. TAZOCILLINE [Suspect]
     Active Substance: PIPERACILLIN SODIUM\TAZOBACTAM SODIUM
     Indication: KLEBSIELLA INFECTION
     Dosage: 4 G, 3X/DAY
     Route: 042
     Dates: start: 20081120, end: 20081128
  15. CICLOSPORIN [Suspect]
     Active Substance: CYCLOSPORINE
     Dosage: 17.4 MG, UNK
     Dates: start: 20081202, end: 20081202
  16. LOXEN [Concomitant]
     Active Substance: NICARDIPINE HYDROCHLORIDE
     Dosage: 50 MG, DAILY
     Route: 065
     Dates: start: 20081125, end: 20081204
  17. TAREG [Concomitant]
     Active Substance: VALSARTAN
     Dosage: 80 MG, 1X/DAY
     Route: 048
     Dates: end: 20081204
  18. SOLU-MEDROL [Concomitant]
     Active Substance: METHYLPREDNISOLONE SODIUM SUCCINATE
     Dosage: 20 MG, 3X/DAY
     Dates: start: 20081119, end: 20081120
  19. ZYLORIC [Suspect]
     Active Substance: ALLOPURINOL
     Dosage: 600 MG, DAILY
     Route: 048
     Dates: start: 20081120, end: 20081204
  20. FLUDARA [Suspect]
     Active Substance: FLUDARABINE PHOSPHATE
     Dosage: 52 MG, 1X/DAY
     Route: 065
     Dates: start: 20081115, end: 20081119
  21. METHOTREXATE (METHOTREXATE SODIUM) [Suspect]
     Active Substance: METHOTREXATE SODIUM
     Dosage: UNK (17.4)
     Route: 065
     Dates: start: 20080102, end: 20081202
  22. NOCTRAN 10 [Concomitant]
     Active Substance: ACEPROMAZINE\ACEPROMETAZINE\CLORAZEPATE DIPOTASSIUM
     Dosage: 1 DF, DAILY (AT BEDTIME)
     Route: 048
     Dates: end: 20081204
  23. BETAGAN [Concomitant]
     Active Substance: LEVOBUNOLOL HYDROCHLORIDE
     Dosage: 1 GTT, DAILY
     Dates: start: 20081113, end: 20081204
  24. ZOPHREN /00955301/ [Concomitant]
     Active Substance: ONDANSETRON
     Dosage: 8 MG, DAILY
     Dates: start: 20081115, end: 20081119
  25. LASILIX /00032601/ [Concomitant]
     Active Substance: FUROSEMIDE
     Dosage: 250 MG, DAILY
     Dates: start: 20081120, end: 20081124
  26. TOPALGIC /00599202/ [Concomitant]
     Active Substance: TRAMADOL
     Dosage: 50 MG, DAILY
     Dates: start: 20081119, end: 20081204
  27. FASTURTEC [Suspect]
     Active Substance: RASBURICASE
     Indication: HYPERURICAEMIA
     Dosage: 15 MG, 1X/DAY
     Route: 042
     Dates: start: 20081114, end: 20081114
  28. CIFLOX [Suspect]
     Active Substance: CIPROFLOXACIN
     Dosage: UNK
     Route: 042
     Dates: start: 20081124, end: 20081128
  29. METHOTREXATE (METHOTREXATE SODIUM) [Suspect]
     Active Substance: METHOTREXATE SODIUM
     Dosage: UNK (17)
     Route: 065
     Dates: start: 20081127, end: 20081127
  30. METHOTREXATE (METHOTREXATE SODIUM) [Suspect]
     Active Substance: METHOTREXATE SODIUM
     Dosage: UNK
  31. CICLOSPORIN [Suspect]
     Active Substance: CYCLOSPORINE
     Indication: PROPHYLAXIS AGAINST TRANSPLANT REJECTION
     Dosage: 26 MG, UNK
     Dates: start: 20081122, end: 20081122
  32. CORDARONE [Concomitant]
     Active Substance: AMIODARONE HYDROCHLORIDE
     Dosage: 150 MG, 4X/DAY
     Route: 042
     Dates: start: 20081124, end: 20081128
  33. FUNGIZONE [Concomitant]
     Active Substance: AMPHOTERICIN B
     Dosage: 8 DF, DAILY
     Route: 048
     Dates: start: 20081115, end: 20081204
  34. POLARAMINE [Concomitant]
     Active Substance: DEXCHLORPHENIRAMINE MALEATE
     Dosage: 5 MG, 2X/DAY
     Dates: start: 20081119, end: 20081120
  35. METHOTREXATE (METHOTREXATE SODIUM) [Suspect]
     Active Substance: METHOTREXATE SODIUM
     Indication: PROPHYLAXIS AGAINST TRANSPLANT REJECTION
     Dosage: 26 MG, UNK
     Route: 065
     Dates: start: 20081122, end: 20081122
  36. CICLOSPORIN [Suspect]
     Active Substance: CYCLOSPORINE
     Dosage: 17 MG, UNK
     Dates: start: 20081127, end: 20081127
  37. ZOVIRAX [Concomitant]
     Active Substance: ACYCLOVIR
     Dosage: 500 MG, DAILY
     Route: 041
     Dates: start: 20081122, end: 20081204
  38. TERCIAN /00759301/ [Concomitant]
     Active Substance: CYAMEMAZINE
     Dosage: 25 GTT, DAILY
     Route: 048
     Dates: start: 20081120, end: 20081204
  39. VFEND [Concomitant]
     Active Substance: VORICONAZOLE
     Dosage: UNK
     Dates: start: 200806
  40. INIPOMP [Suspect]
     Active Substance: PANTOPRAZOLE SODIUM
     Dosage: 20 MG, 1X/DAY
     Route: 048
     Dates: start: 20081113, end: 20081204
  41. TREOSULFAN [Suspect]
     Active Substance: TREOSULFAN
     Dosage: 21 G, 1X/DAY
     Route: 042
     Dates: start: 20081115, end: 20081117
  42. TOPALGIC [Suspect]
     Active Substance: TRAMADOL
     Dosage: 50 MG, 1X/DAY
     Route: 042
     Dates: start: 20081119, end: 20081204
  43. FORLAX [Concomitant]
     Active Substance: POLYETHYLENE GLYCOL 4000
     Dosage: 2 DF, AS NEEDED
     Route: 048
     Dates: end: 20081204
  44. DAFALGAN [Concomitant]
     Active Substance: ACETAMINOPHEN
     Dosage: 500 MG, 3X/DAY
     Route: 048
     Dates: end: 20081204
  45. VITAMINE A DULCIS [Concomitant]
     Dosage: 1 DF, 2X/DAY
     Route: 047
     Dates: start: 20081113, end: 20081204
  46. PRIMPERAN [Concomitant]
     Active Substance: METOCLOPRAMIDE HYDROCHLORIDE
     Dosage: 2 DF, DAILY
     Dates: start: 20081115, end: 20081119

REACTIONS (3)
  - Cholestasis [Unknown]
  - Toxic epidermal necrolysis [Fatal]
  - Stupor [Fatal]

NARRATIVE: CASE EVENT DATE: 20081125
